FAERS Safety Report 8511254-4 (Version None)
Quarter: 2012Q3

REPORT INFORMATION
  Report Type: 
  Country: None (occurrence: None)
  Receive Date: 20120716
  Receipt Date: 20120710
  Transmission Date: 20120928
  Serious: Yes (Death)
  Sender: FDA-Public Use
  Company Number: GB-JNJFOC-20120705490

PATIENT
  Age: 84 Year
  Sex: Female

DRUGS (3)
  1. METHOTREXATE [Concomitant]
  2. AZULFIDINE [Concomitant]
  3. REMICADE [Suspect]
     Indication: RHEUMATOID ARTHRITIS
     Route: 042
     Dates: start: 20020717

REACTIONS (1)
  - LUNG NEOPLASM MALIGNANT [None]
